FAERS Safety Report 10936332 (Version 1)
Quarter: 2015Q1

REPORT INFORMATION
  Report Type: Spontaneous
  Country: US (occurrence: None)
  Receive Date: 20150320
  Receipt Date: 20150320
  Transmission Date: 20150721
  Serious: Yes (Life-Threatening, Hospitalization)
  Sender: FDA-Public Use
  Company Number: None

PATIENT
  Age: 59 Year
  Sex: Female
  Weight: 106.6 kg

DRUGS (1)
  1. SOTALOL 80 MG [Suspect]
     Active Substance: SOTALOL
     Indication: BLOOD PRESSURE
     Route: 048
     Dates: start: 20140615, end: 20140619

REACTIONS (4)
  - Dyspnoea [None]
  - Chest pain [None]
  - Ventricular fibrillation [None]
  - Tachycardia [None]

NARRATIVE: CASE EVENT DATE: 20140615
